FAERS Safety Report 4892589-3 (Version None)
Quarter: 2006Q1

REPORT INFORMATION
  Report Type: 
  Country: None (occurrence: None)
  Receive Date: 20060126
  Receipt Date: 20060119
  Transmission Date: 20060701
  Serious: Yes (Other)
  Sender: FDA-Public Use
  Company Number: KR-ROCHE-432717

PATIENT
  Sex: Female

DRUGS (1)
  1. ROACCUTANE [Suspect]
     Indication: DRUG USE FOR UNKNOWN INDICATION
     Route: 048
     Dates: end: 20051015

REACTIONS (2)
  - NO ADVERSE EFFECT [None]
  - PREGNANCY [None]
